FAERS Safety Report 4675156-6 (Version None)
Quarter: 2005Q2

REPORT INFORMATION
  Report Type: 
  Country: None (occurrence: None)
  Receive Date: 20050526
  Receipt Date: 20050518
  Transmission Date: 20051028
  Serious: Yes (Hospitalization, Other)
  Sender: FDA-Public Use
  Company Number: 2005076301

PATIENT
  Age: 65 Year
  Sex: Male
  Weight: 92.9874 kg

DRUGS (4)
  1. LIPITOR [Suspect]
     Indication: BLOOD CHOLESTEROL INCREASED
     Dosage: 40 MG (40 MG, 1 IN 1 D), ORAL
     Route: 048
     Dates: end: 20050401
  2. CENTRUM (MINERALS NOS, VITAMINS NOS) [Concomitant]
  3. CALCIUM (CALCIUM) [Concomitant]
  4. VITAMIN C (VITAMIN C) [Concomitant]

REACTIONS (6)
  - CORONARY ARTERY OCCLUSION [None]
  - DIZZINESS [None]
  - HYPERTENSION [None]
  - PAIN IN EXTREMITY [None]
  - PALPITATIONS [None]
  - SYNCOPE [None]
